FAERS Safety Report 16887235 (Version 2)
Quarter: 2019Q4

REPORT INFORMATION
  Report Type: Spontaneous
  Country: DE (occurrence: DE)
  Receive Date: 20191004
  Receipt Date: 20191120
  Transmission Date: 20200122
  Serious: Yes (Other)
  Sender: FDA-Public Use
  Company Number: DE-ALLERGAN-1940015US

PATIENT
  Sex: Male
  Weight: 70 kg

DRUGS (6)
  1. AVONEX [Concomitant]
     Active Substance: INTERFERON BETA-1A
     Indication: MULTIPLE SCLEROSIS
     Dosage: 1 DF, Q WEEK
     Dates: start: 2002
  2. X-SYSTO [Concomitant]
     Indication: CYSTITIS NONINFECTIVE
  3. SILODOSIN - BP [Suspect]
     Active Substance: SILODOSIN
     Indication: URINARY RETENTION
     Dosage: 8 MG, QD
     Route: 048
     Dates: start: 201301
  4. BACLOFEN. [Concomitant]
     Active Substance: BACLOFEN
     Indication: HYPERTONIC BLADDER
     Dosage: 10 MG, QD
     Dates: start: 2013
  5. CORTISONE [Concomitant]
     Active Substance: CORTISONE
  6. INTERFERON [Concomitant]
     Active Substance: INTERFERON
     Dosage: UNK

REACTIONS (4)
  - Retrograde ejaculation [Not Recovered/Not Resolved]
  - Erectile dysfunction [Not Recovered/Not Resolved]
  - Off label use [Unknown]
  - Orthostatic hypotension [Not Recovered/Not Resolved]

NARRATIVE: CASE EVENT DATE: 201301
